FAERS Safety Report 7413972-8 (Version None)
Quarter: 2011Q2

REPORT INFORMATION
  Report Type: 
  Country: None (occurrence: None)
  Receive Date: 20110414
  Receipt Date: 20110329
  Transmission Date: 20111010
  Serious: No
  Sender: FDA-Public Use
  Company Number: US-BIOGENIDEC-2011BI012256

PATIENT
  Age: 41 Year
  Sex: Female

DRUGS (2)
  1. TYSABRI [Suspect]
     Indication: MULTIPLE SCLEROSIS
     Route: 042
     Dates: start: 20090626
  2. TYSABRI [Suspect]
     Route: 042
     Dates: start: 20071011, end: 20081124

REACTIONS (2)
  - FATIGUE [None]
  - COGNITIVE DISORDER [None]
